FAERS Safety Report 9670778 (Version 2)
Quarter: 2013Q4

REPORT INFORMATION
  Report Type: Spontaneous
  Country: US (occurrence: US)
  Receive Date: 20131106
  Receipt Date: 20131106
  Transmission Date: 20140711
  Serious: Yes (Life-Threatening)
  Sender: FDA-Public Use
  Company Number: US-DRREDDYS-USA/USA/13/0035202

PATIENT
  Age: 24 Year
  Sex: Female

DRUGS (4)
  1. SIMVASTATIN [Suspect]
     Indication: PRODUCT USED FOR UNKNOWN INDICATION
     Route: 048
  2. AMLODIPINE BESYLATE [Suspect]
     Indication: PRODUCT USED FOR UNKNOWN INDICATION
     Dosage: 400 TO 600 MG
     Route: 048
  3. TRAZODONE [Suspect]
     Indication: PRODUCT USED FOR UNKNOWN INDICATION
     Route: 048
  4. SERTRALINE [Concomitant]
     Indication: DEPRESSION
     Route: 065

REACTIONS (11)
  - Hypotension [Unknown]
  - Nausea [Unknown]
  - Vomiting [Unknown]
  - Diarrhoea [Unknown]
  - Metabolic acidosis [Unknown]
  - Rhabdomyolysis [Recovered/Resolved]
  - Renal tubular necrosis [Unknown]
  - Renal failure [Unknown]
  - Lung infiltration [Recovering/Resolving]
  - Staphylococcal infection [Unknown]
  - Intentional overdose [Unknown]
